FAERS Safety Report 25553005 (Version 3)
Quarter: 2025Q3

REPORT INFORMATION
  Report Type: Report from Study
  Country: MX (occurrence: MX)
  Receive Date: 20250715
  Receipt Date: 20250829
  Transmission Date: 20251021
  Serious: Yes (Death)
  Sender: BIOVITRUM
  Company Number: MX-AstraZeneca-CH-00908376A

PATIENT
  Age: 3 Month
  Sex: Female

DRUGS (2)
  1. PALIVIZUMAB [Suspect]
     Active Substance: PALIVIZUMAB
     Indication: Antiviral prophylaxis
     Route: 030
     Dates: start: 20250611
  2. PALIVIZUMAB [Suspect]
     Active Substance: PALIVIZUMAB
     Route: 065
     Dates: start: 20250514

REACTIONS (1)
  - Death [Fatal]

NARRATIVE: CASE EVENT DATE: 20250708
